FAERS Safety Report 5310509-4 (Version None)
Quarter: 2007Q2

REPORT INFORMATION
  Report Type: 
  Country: None (occurrence: None)
  Receive Date: 20070427
  Receipt Date: 20070420
  Transmission Date: 20071010
  Serious: Yes (Hospitalization, Other)
  Sender: FDA-Public Use
  Company Number: US-ABBOTT-07P-163-0365869-00

PATIENT
  Sex: Female
  Weight: 60.382 kg

DRUGS (6)
  1. DEPAKOTE ER [Suspect]
     Indication: BIPOLAR DISORDER
     Route: 048
     Dates: start: 20060201, end: 20060601
  2. DEPAKOTE ER [Suspect]
     Route: 048
     Dates: start: 20060901
  3. CLONAZEPAM [Concomitant]
     Indication: ANXIETY
     Route: 048
  4. CLONAZEPAM [Concomitant]
     Indication: INSOMNIA
  5. LEXAPRO [Concomitant]
     Indication: DEPRESSION
     Route: 048
  6. PHENYTOIN SODIUM [Concomitant]
     Indication: CONVULSION PROPHYLAXIS
     Route: 048
     Dates: start: 20041116, end: 20070114

REACTIONS (5)
  - ALOPECIA [None]
  - BACK PAIN [None]
  - CHOLELITHIASIS [None]
  - DYSPEPSIA [None]
  - MENSTRUATION IRREGULAR [None]
